FAERS Safety Report 17581204 (Version 1)
Quarter: 2020Q1

REPORT INFORMATION
  Report Type: Spontaneous
  Country: US (occurrence: US)
  Receive Date: 20200325
  Receipt Date: 20200325
  Transmission Date: 20200409
  Serious: Yes (Hospitalization)
  Sender: FDA-Public Use
  Company Number: None

PATIENT
  Age: 10 Year
  Sex: Male

DRUGS (1)
  1. MIRTAZAPINE. [Suspect]
     Active Substance: MIRTAZAPINE
     Route: 048
     Dates: start: 20191223, end: 20200325

REACTIONS (5)
  - Blister [None]
  - Oral pain [None]
  - Genital blister [None]
  - Lip pain [None]
  - Pneumonia mycoplasmal [None]

NARRATIVE: CASE EVENT DATE: 20200309
